FAERS Safety Report 16882215 (Version 1)
Quarter: 2019Q4

REPORT INFORMATION
  Report Type: Spontaneous
  Country: US (occurrence: US)
  Receive Date: 20191003
  Receipt Date: 20191003
  Transmission Date: 20200122
  Serious: Yes (Other)
  Sender: FDA-Public Use
  Company Number: US-TEVA-2019-US-1115467

PATIENT
  Age: 78 Year
  Sex: Male
  Weight: 84 kg

DRUGS (5)
  1. QVAR [Suspect]
     Active Substance: BECLOMETHASONE DIPROPIONATE
     Dosage: 2 PUFF TWICE DAILY
     Route: 065
  2. MULTAQ [Concomitant]
     Active Substance: DRONEDARONE
     Route: 065
  3. QVAR REDIHALER [Suspect]
     Active Substance: BECLOMETHASONE DIPROPIONATE
     Dosage: 2 PUFF TWICE DAILY
     Route: 065
  4. QVAR REDIHALER [Suspect]
     Active Substance: BECLOMETHASONE DIPROPIONATE
     Indication: ASTHMA
     Dosage: 1 PUFF TWICE DAILY
     Route: 065
  5. QVAR [Suspect]
     Active Substance: BECLOMETHASONE DIPROPIONATE
     Indication: ASTHMA
     Dosage: 1 PUFF TWICE DAILY
     Route: 065

REACTIONS (5)
  - Dizziness [Unknown]
  - Visual field defect [Unknown]
  - Cerebrovascular accident [Unknown]
  - Asthma [Unknown]
  - Pneumonia [Unknown]

NARRATIVE: CASE EVENT DATE: 201904
